FAERS Safety Report 7594626-4 (Version None)
Quarter: 2011Q3

REPORT INFORMATION
  Report Type: 
  Country: None (occurrence: None)
  Receive Date: 20110707
  Receipt Date: 20110630
  Transmission Date: 20111222
  Serious: Yes (Death)
  Sender: FDA-Public Use
  Company Number: TR-US-EMD SERONO, INC.-7068544

PATIENT
  Sex: Female
  Weight: 69 kg

DRUGS (1)
  1. REBIF [Suspect]
     Indication: MULTIPLE SCLEROSIS
     Route: 058
     Dates: start: 20101101

REACTIONS (1)
  - BRAIN NEOPLASM [None]
